FAERS Safety Report 18463918 (Version 1)
Quarter: 2020Q4

REPORT INFORMATION
  Report Type: Spontaneous
  Country: US (occurrence: US)
  Receive Date: 20201104
  Receipt Date: 20201104
  Transmission Date: 20210114
  Serious: No
  Sender: FDA-Public Use
  Company Number: US-VERTEX PHARMACEUTICALS-2020-021554

PATIENT
  Sex: Male
  Weight: 68 kg

DRUGS (14)
  1. DOXYCYCLINE HYCLATE. [Concomitant]
     Active Substance: DOXYCYCLINE HYCLATE
  2. ALBUTEROL SULFATE. [Concomitant]
     Active Substance: ALBUTEROL SULFATE
  3. GABAPENTIN. [Concomitant]
     Active Substance: GABAPENTIN
  4. RISPERDAL [Concomitant]
     Active Substance: RISPERIDONE
  5. HYPERSAL [Concomitant]
     Active Substance: SODIUM CHLORIDE
  6. AZITHROMYCIN ANHYDROUS. [Concomitant]
     Active Substance: AZITHROMYCIN ANHYDROUS
  7. URSODIOL. [Concomitant]
     Active Substance: URSODIOL
  8. VIMPAT [Concomitant]
     Active Substance: LACOSAMIDE
  9. OMEPRAZOLE. [Concomitant]
     Active Substance: OMEPRAZOLE
  10. ZENPEP [Concomitant]
     Active Substance: PANCRELIPASE AMYLASE\PANCRELIPASE LIPASE\PANCRELIPASE PROTEASE
  11. TRIKAFTA [Suspect]
     Active Substance: ELEXACAFTOR\IVACAFTOR\TEZACAFTOR
     Indication: CYSTIC FIBROSIS
     Dosage: 2 TABS (100 MG ELEXACAFTOR/ 50 MG TEZACAFTOR/ 75 MG IVACAFTOR) AM AND 1 TAB (150MG IVACAFTOR) PM
     Route: 048
  12. OLANZAPINE. [Concomitant]
     Active Substance: OLANZAPINE
  13. NICOTINE. [Concomitant]
     Active Substance: NICOTINE
  14. BENZTROPINE MESILATE [Concomitant]
     Active Substance: BENZTROPINE MESYLATE

REACTIONS (1)
  - Wound [Unknown]
